FAERS Safety Report 9218588 (Version 3)
Quarter: 2013Q2

REPORT INFORMATION
  Report Type: Spontaneous
  Country: US (occurrence: US)
  Receive Date: 20130409
  Receipt Date: 20130502
  Transmission Date: 20140414
  Serious: Yes (Other)
  Sender: FDA-Public Use
  Company Number: US-MERCK-1304USA002928

PATIENT
  Sex: Male

DRUGS (12)
  1. JANUVIA [Suspect]
     Indication: DIABETES MELLITUS
     Dosage: 100 MG, QD
     Route: 048
     Dates: start: 2011
  2. LANTUS [Suspect]
     Dosage: 600, ADJUSTED FROM 26-13
  3. AMITRIPTYLINE HYDROCHLORIDE [Concomitant]
  4. TEMAZEPAM [Concomitant]
  5. QUETIAPINE FUMARATE [Concomitant]
  6. CIPRO [Concomitant]
  7. TRAZODONE HYDROCHLORIDE [Concomitant]
  8. TAMSULOSIN HYDROCHLORIDE [Concomitant]
  9. LEVOTHYROXINE SODIUM [Concomitant]
  10. METFORMIN [Concomitant]
     Dosage: 1000 MG IN THE MORNING AND 1000 MG AT NIGHT
  11. LOVAZA [Concomitant]
  12. INSULIN [Concomitant]

REACTIONS (6)
  - Grand mal convulsion [Not Recovered/Not Resolved]
  - Petit mal epilepsy [Not Recovered/Not Resolved]
  - Abdominal rigidity [Not Recovered/Not Resolved]
  - Metabolic disorder [Not Recovered/Not Resolved]
  - Blood glucose fluctuation [Not Recovered/Not Resolved]
  - Nausea [Not Recovered/Not Resolved]
